FAERS Safety Report 14568005 (Version 1)
Quarter: 2018Q1

REPORT INFORMATION
  Report Type: Spontaneous
  Country: US (occurrence: US)
  Receive Date: 20180223
  Receipt Date: 20180223
  Transmission Date: 20180509
  Serious: Yes (Other)
  Sender: FDA-Public Use
  Company Number: US-SAOL THERAPEUTICS-2018SAO00243

PATIENT
  Age: 21 Year
  Sex: Female

DRUGS (1)
  1. LIORESAL [Suspect]
     Active Substance: BACLOFEN
     Indication: MUSCLE SPASTICITY
     Dosage: 200 ?G, \DAY
     Route: 037

REACTIONS (2)
  - Complication associated with device [Recovered/Resolved]
  - Incisional drainage [Recovered/Resolved]

NARRATIVE: CASE EVENT DATE: 201801
